FAERS Safety Report 11160933 (Version 1)
Quarter: 2015Q2

REPORT INFORMATION
  Report Type: Spontaneous
  Country: US (occurrence: US)
  Receive Date: 20150604
  Receipt Date: 20150604
  Transmission Date: 20150821
  Serious: No
  Sender: FDA-Public Use
  Company Number: US-SA-2014SA071610

PATIENT
  Age: 77 Year
  Sex: Female

DRUGS (3)
  1. INSULIN GLARGINE [Suspect]
     Active Substance: INSULIN GLARGINE
     Indication: TYPE 2 DIABETES MELLITUS
     Dosage: 10 UNITS AM AND 8 UNITS PM
     Route: 058
     Dates: start: 2013
  2. INSULIN GLARGINE [Suspect]
     Active Substance: INSULIN GLARGINE
     Indication: TYPE 2 DIABETES MELLITUS
     Dosage: 13 UNITS IN AM AND 8 UNITS IN PM
     Route: 058
  3. SOLOSTAR [Concomitant]
     Active Substance: DEVICE
     Indication: TYPE 2 DIABETES MELLITUS
     Dates: start: 2013

REACTIONS (3)
  - Pain in extremity [Unknown]
  - Off label use [Unknown]
  - Gait disturbance [Unknown]

NARRATIVE: CASE EVENT DATE: 2013
